FAERS Safety Report 4603055-4 (Version None)
Quarter: 2005Q1

REPORT INFORMATION
  Report Type: 
  Country: None (occurrence: None)
  Receive Date: 20050307
  Receipt Date: 20050217
  Transmission Date: 20050727
  Serious: Yes (Other)
  Sender: FDA-Public Use
  Company Number: 2005034248

PATIENT
  Age: 31 Year
  Sex: Female
  Weight: 121 kg

DRUGS (6)
  1. SERTRALINE HCL [Suspect]
     Indication: DEPRESSION
     Dosage: 250 MG (250 MG, 1 IN 1 D), ORAL
     Route: 048
     Dates: start: 20040616
  2. REBOXETINE (REBOXETINE) [Suspect]
     Indication: DEPRESSION
     Dosage: 12 MG (12 MG, 1 IN D), ORAL
     Route: 048
     Dates: start: 20040801
  3. VENLAFAXINE HCL [Concomitant]
  4. ATENOLOL [Concomitant]
  5. NEDOCROMIL (NEDOCROMIL) [Concomitant]
  6. SALBUTAMOL SULFATE (SALBUTAMOL SULFATE) [Concomitant]

REACTIONS (2)
  - CSF PROTEIN INCREASED [None]
  - INTRACRANIAL PRESSURE INCREASED [None]
